FAERS Safety Report 23740658 (Version 2)
Quarter: 2024Q2

REPORT INFORMATION
  Report Type: Other
  Country: US (occurrence: None)
  Receive Date: 20240415
  Receipt Date: 20240531
  Transmission Date: 20240716
  Serious: Yes (Other)
  Sender: FDA-Public Use
  Company Number: US-ROCHE-3538976

PATIENT
  Age: 54 Year
  Sex: Male
  Weight: 83.4 kg

DRUGS (11)
  1. CELLCEPT [Suspect]
     Active Substance: MYCOPHENOLATE MOFETIL
     Indication: Renal transplant
     Dosage: 500MG 2 TABLET BY MOUTH EVERY 12 HOURS.
     Route: 048
  2. INSULIN ASPART [Concomitant]
     Active Substance: INSULIN ASPART
     Dosage: INJECT INTO THE SKIN 3 TIMES DAILY WITH MEALS. 7 UNITS WITH BREAKFAST, 9 UNITS IN LUNCH AND 7 UNITS
  3. INSULIN GLARGINE [Concomitant]
     Active Substance: INSULIN GLARGINE
     Dosage: INJECT 14 UNITS INTO THE SKIN ONCE EVERY MORNING. (PATIENT TAKING DIFFERENTLY: INJECT 15 UNITS INTO
  4. LABETALOL [Concomitant]
     Active Substance: LABETALOL\LABETALOL HYDROCHLORIDE
     Dosage: TAKE FOR SBP 120
  5. LABETALOL [Concomitant]
     Active Substance: LABETALOL\LABETALOL HYDROCHLORIDE
  6. MAGNESIUM OXIDE [Concomitant]
     Active Substance: MAGNESIUM OXIDE
     Route: 048
  7. NIFEDIPINE [Concomitant]
     Active Substance: NIFEDIPINE
     Dosage: 24 HOURS
     Route: 048
  8. OMEPRAZOLE [Concomitant]
     Active Substance: DONEPEZIL HYDROCHLORIDE\OMEPRAZOLE\OMEPRAZOLE MAGNESIUM
     Dosage: TAKE 1 CAPSULE BY 30 CAPSULE 5 MOUTH ONCE DAILY BEFORE DINNER.?TRANSPLANT DISCHARGE MEDICATION. FOLL
     Route: 048
  9. TACROLIMUS [Concomitant]
     Active Substance: TACROLIMUS
     Route: 048
  10. ATORVASTATIN [Concomitant]
     Active Substance: ATORVASTATIN
     Dosage: EVERY MONDAY TAKE 1 TABLET BY MOUTH ONCE EVERY NIGHT AT BEDTIME 30 TABLET
     Route: 048
  11. PROCARDIA (UNITED STATES) [Concomitant]

REACTIONS (15)
  - Chronic kidney disease [Unknown]
  - Type 2 diabetes mellitus [Unknown]
  - Arthritis [Unknown]
  - Nocturia [Unknown]
  - Overweight [Unknown]
  - Blood pressure increased [Unknown]
  - Coxsackie viral infection [Unknown]
  - Hypomagnesaemia [Unknown]
  - Type V hyperlipidaemia [Unknown]
  - Hypertension [Unknown]
  - Insomnia [Unknown]
  - Arthralgia [Unknown]
  - Hypocalcaemia [Unknown]
  - Orthostatic hypotension [Unknown]
  - Epstein-Barr virus infection [Unknown]
